FAERS Safety Report 5758148-5 (Version None)
Quarter: 2008Q2

REPORT INFORMATION
  Report Type: 
  Country: None (occurrence: None)
  Receive Date: 20080602
  Receipt Date: 20080602
  Transmission Date: 20081010
  Serious: No
  Sender: FDA-Public Use
  Company Number: None

PATIENT
  Sex: Female
  Weight: 105 kg

DRUGS (6)
  1. TAXOL [Suspect]
     Dosage: 172 MG
  2. CALCIUM [Concomitant]
  3. GINSENG [Concomitant]
  4. NEULASTA [Concomitant]
  5. VITAMEN D 400 IU QD [Concomitant]
  6. ZOMETA [Concomitant]

REACTIONS (2)
  - BLOOD GLUCOSE INCREASED [None]
  - BLOOD PHOSPHORUS DECREASED [None]
